FAERS Safety Report 6879886-7 (Version None)
Quarter: 2010Q3

REPORT INFORMATION
  Report Type: 
  Country: None (occurrence: None)
  Receive Date: 20100727
  Receipt Date: 20100604
  Transmission Date: 20110219
  Serious: No
  Sender: FDA-Public Use
  Company Number: US-ABBOTT-10P-163-0649767-00

PATIENT
  Sex: Female
  Weight: 70.37 kg

DRUGS (4)
  1. SYNTHROID [Suspect]
     Indication: THYROIDECTOMY
     Dosage: 112 MCG DAILY IN AM
     Route: 048
     Dates: start: 19960101
  2. SYNTHROID [Suspect]
     Dosage: 125 MCG DAILY IN AM, 1/2 TABLET WED AND SUN AFTER MAY 2010 LABS
  3. VERAMIST [Concomitant]
     Indication: PRODUCT USED FOR UNKNOWN INDICATION
  4. LUNESTA [Concomitant]
     Indication: PRODUCT USED FOR UNKNOWN INDICATION

REACTIONS (6)
  - BLOOD THYROID STIMULATING HORMONE ABNORMAL [None]
  - DRUG ADMINISTRATION ERROR [None]
  - DRUG EFFECT DECREASED [None]
  - FATIGUE [None]
  - TRI-IODOTHYRONINE DECREASED [None]
  - WEIGHT INCREASED [None]
